FAERS Safety Report 17589660 (Version 2)
Quarter: 2020Q1

REPORT INFORMATION
  Report Type: Report from Study
  Country: EC (occurrence: EC)
  Receive Date: 20200327
  Receipt Date: 20200330
  Transmission Date: 20200409
  Serious: Yes (Death, Other)
  Sender: FDA-Public Use
  Company Number: EC-IPSEN BIOPHARMACEUTICALS, INC.-2020-06061

PATIENT
  Age: 78 Year
  Sex: Male

DRUGS (2)
  1. DYSPORT [Suspect]
     Active Substance: ABOBOTULINUMTOXINA
     Indication: OFF LABEL USE
  2. DYSPORT [Suspect]
     Active Substance: ABOBOTULINUMTOXINA
     Indication: FACIAL PARALYSIS
     Dosage: 500 UNITS
     Route: 030
     Dates: start: 20160721, end: 20191109

REACTIONS (2)
  - Infarction [Fatal]
  - Off label use [Unknown]

NARRATIVE: CASE EVENT DATE: 20191112
